FAERS Safety Report 25231767 (Version 2)
Quarter: 2025Q2

REPORT INFORMATION
  Report Type: Report from Study
  Country: CA (occurrence: CA)
  Receive Date: 20250423
  Receipt Date: 20250524
  Transmission Date: 20250716
  Serious: Yes (Death)
  Sender: ABBVIE
  Company Number: CA-ABBVIE-6245754

PATIENT
  Age: 81 Year
  Sex: Male

DRUGS (4)
  1. BOTOX [Suspect]
     Active Substance: ONABOTULINUMTOXINA
     Indication: Muscle spasticity
     Route: 030
     Dates: start: 20230824, end: 20230824
  2. BOTOX [Suspect]
     Active Substance: ONABOTULINUMTOXINA
     Indication: Muscle spasticity
     Route: 030
     Dates: start: 20240919, end: 20240919
  3. INSULIN NOS [Concomitant]
     Active Substance: INSULIN NOS
     Indication: Diabetes mellitus
     Dates: start: 2023, end: 202501
  4. LABETALOL [Concomitant]
     Active Substance: LABETALOL
     Indication: Product used for unknown indication
     Route: 048

REACTIONS (1)
  - Cerebrovascular accident [Fatal]

NARRATIVE: CASE EVENT DATE: 20241219
